FAERS Safety Report 4928355-X (Version None)
Quarter: 2006Q1

REPORT INFORMATION
  Report Type: 
  Country: None (occurrence: None)
  Receive Date: 20060223
  Receipt Date: 20060201
  Transmission Date: 20060701
  Serious: Yes (Other)
  Sender: FDA-Public Use
  Company Number: FR200602000049

PATIENT
  Age: 60 Year
  Sex: Female

DRUGS (10)
  1. RALOXIFENE HCL [Suspect]
     Indication: OSTEOPOROSIS
     Dosage: UNK, DAILY (1/D), ORAL
     Route: 048
     Dates: start: 20050701
  2. CALCIUM (CALCIUM) [Concomitant]
  3. VITAMIN D [Concomitant]
  4. CITALOPRAM HYDROBROMIDE [Concomitant]
  5. TEMESTA (LORAZEPAM) [Concomitant]
  6. ALDACTAZINE (ALTIZIDE, SPIRONOLACTONE) [Concomitant]
  7. OMEPRAZOLE [Concomitant]
  8. NAPROXEN SODIUM [Concomitant]
  9. KENACORT [Concomitant]
  10. ACTONEL [Concomitant]

REACTIONS (1)
  - TENOSYNOVITIS STENOSANS [None]
